FAERS Safety Report 5659928-7 (Version None)
Quarter: 2008Q1

REPORT INFORMATION
  Report Type: 
  Country: None (occurrence: None)
  Receive Date: 20080311
  Receipt Date: 20070815
  Transmission Date: 20080703
  Serious: No
  Sender: FDA-Public Use
  Company Number: US-BAYER-200712643BCC

PATIENT
  Sex: Female
  Weight: 57 kg

DRUGS (2)
  1. ALEVE [Suspect]
     Indication: POST-TRAUMATIC PAIN
     Dosage: UNIT DOSE: 220 MG
     Route: 048
  2. ASPIRIN [Suspect]
     Indication: CARDIOVASCULAR EVENT PROPHYLAXIS
     Dosage: TOTAL DAILY DOSE: 81 MG  UNIT DOSE: 81 MG
     Route: 048

REACTIONS (1)
  - PARAESTHESIA [None]
